FAERS Safety Report 7919445-8 (Version None)
Quarter: 2011Q4

REPORT INFORMATION
  Report Type: 
  Country: None (occurrence: None)
  Receive Date: 20111117
  Receipt Date: 20111103
  Transmission Date: 20120403
  Serious: Yes (Disabling)
  Sender: FDA-Public Use
  Company Number: GB-MYLANLABS-2011S1022825

PATIENT
  Age: 85 Year
  Sex: Male
  Weight: 70 kg

DRUGS (6)
  1. FINASTERIDE [Suspect]
     Indication: PRODUCT USED FOR UNKNOWN INDICATION
     Dates: start: 20111028
  2. MIRTAZAPINE [Concomitant]
     Indication: PRODUCT USED FOR UNKNOWN INDICATION
     Dates: start: 20110709, end: 20110920
  3. MIRTAZAPINE [Concomitant]
     Dates: start: 20110929
  4. AMOXICILLIN [Concomitant]
     Indication: PRODUCT USED FOR UNKNOWN INDICATION
     Dates: start: 20110810, end: 20110817
  5. DIGOXIN [Concomitant]
     Indication: PRODUCT USED FOR UNKNOWN INDICATION
     Dates: start: 20110701, end: 20110920
  6. DIGOXIN [Concomitant]
     Dates: start: 20110929, end: 20111027

REACTIONS (1)
  - DIZZINESS [None]
